FAERS Safety Report 4987994-0 (Version None)
Quarter: 2006Q2

REPORT INFORMATION
  Report Type: 
  Country: None (occurrence: None)
  Receive Date: 20060426
  Receipt Date: 20060419
  Transmission Date: 20061013
  Serious: Yes (Life-Threatening, Hospitalization, Disabling, Other)
  Sender: FDA-Public Use
  Company Number: 2005054811

PATIENT
  Age: 58 Year
  Sex: Male

DRUGS (11)
  1. CABERGOLINE [Suspect]
     Indication: PARKINSON'S DISEASE
     Dosage: 6 MG (6 MG, 1 D), ORAL
     Route: 048
     Dates: start: 19970814, end: 20050111
  2. SINEMET [Concomitant]
  3. ELDEPRYL [Concomitant]
  4. SIMVASTATIN [Concomitant]
  5. ODRIK (TRANDOLARPIL) [Concomitant]
  6. SPIRONOLACTONE [Concomitant]
  7. CORDARONE [Concomitant]
  8. FUROSEMIDE [Concomitant]
  9. DIMITONE(CARVEDILOL) [Concomitant]
  10. WARFARIN SODIUM [Concomitant]
  11. POTASSIUM (POTASSIUM) [Concomitant]

REACTIONS (7)
  - ATRIAL FIBRILLATION [None]
  - CARDIAC FAILURE [None]
  - CARDIAC PROCEDURE COMPLICATION [None]
  - MITRAL VALVE INCOMPETENCE [None]
  - MITRAL VALVE SCLEROSIS [None]
  - TRICUSPID VALVE INCOMPETENCE [None]
  - TRICUSPID VALVE SCLEROSIS [None]
